FAERS Safety Report 16560844 (Version 1)
Quarter: 2019Q3

REPORT INFORMATION
  Report Type: Spontaneous
  Country: US (occurrence: US)
  Receive Date: 20190711
  Receipt Date: 20190711
  Transmission Date: 20191004
  Serious: No
  Sender: FDA-Public Use
  Company Number: US-009507513-1907USA005096

PATIENT
  Age: 37 Year
  Sex: Female

DRUGS (3)
  1. PNV [Concomitant]
     Dosage: STRENGTH Q-10 CAP
  2. FOLLISTIM [Suspect]
     Active Substance: FOLLITROPIN
     Indication: INFERTILITY
     Dosage: 300 UNITS , QD FOR 10 DAYS
     Route: 058
     Dates: start: 20190608
  3. MENOPUR [Suspect]
     Active Substance: FOLLITROPIN\LUTEINIZING HORMONE
     Indication: INFERTILITY
     Dosage: STRENGTH 75 IU SDV W/Q CAP, DOSE75 UNITS , QD FOR 10 DAYS
     Route: 058
     Dates: start: 20190608

REACTIONS (1)
  - Lip swelling [Recovered/Resolved]

NARRATIVE: CASE EVENT DATE: 20190624
